FAERS Safety Report 7432009-8 (Version None)
Quarter: 2011Q2

REPORT INFORMATION
  Report Type: 
  Country: None (occurrence: None)
  Receive Date: 20110422
  Receipt Date: 20110407
  Transmission Date: 20111010
  Serious: Yes (Death, Hospitalization)
  Sender: FDA-Public Use
  Company Number: US-CELGENEUS-163-21880-11022729

PATIENT
  Sex: Male
  Weight: 91.4 kg

DRUGS (18)
  1. AZITHROMYCIN [Concomitant]
     Route: 065
     Dates: start: 20110210
  2. NS [Concomitant]
     Dosage: 1 L
     Route: 040
     Dates: start: 20110210
  3. MOTRIN [Concomitant]
     Dosage: 200 MILLIGRAM
     Route: 048
  4. AMBIEN [Concomitant]
     Indication: INSOMNIA
     Dosage: 5 MILLIGRAM
     Route: 048
  5. VIDAZA [Suspect]
     Dosage: 75 MILLIGRAM/SQ. METER
     Route: 051
     Dates: start: 20110128, end: 20110203
  6. MTX [Concomitant]
     Indication: RHEUMATOID ARTHRITIS
     Route: 065
  7. REVLIMID [Suspect]
     Dosage: 50 MILLIGRAM
     Route: 048
     Dates: start: 20110204, end: 20110210
  8. PLATELETS [Concomitant]
     Dosage: 1 UNIT
     Route: 051
     Dates: start: 20110210
  9. MORPHINE [Concomitant]
     Dosage: 20MG/ML
     Route: 065
  10. ATROPINE [Concomitant]
     Indication: SECRETION DISCHARGE
     Dosage: 1% 2-4 DROPS
     Route: 048
  11. CEFEPIME [Concomitant]
     Route: 065
     Dates: start: 20110210
  12. COMBIVENT [Concomitant]
     Dosage: 103MCG-18MCG 1 PUFF
     Route: 055
  13. HALDOL [Concomitant]
     Dosage: 2MG/ML 0.25-1ML
     Route: 048
  14. DOCUSATE [Concomitant]
     Dosage: 100 MILLIGRAM
     Route: 048
  15. VANCO [Concomitant]
     Route: 065
     Dates: start: 20110210
  16. FLUTICASONE PROPIONATE [Concomitant]
     Dosage: 220 MICROGRAM
     Route: 055
  17. OXYGEN [Concomitant]
     Indication: HYPOXIA
     Dosage: 2-4L/MIN
     Route: 045
  18. SENOKOT [Concomitant]
     Indication: CONSTIPATION
     Dosage: 8.6 MILLIGRAM
     Route: 048

REACTIONS (2)
  - ACUTE MYELOID LEUKAEMIA [None]
  - PNEUMONIA [None]
